FAERS Safety Report 10931558 (Version 2)
Quarter: 2015Q1

REPORT INFORMATION
  Report Type: Spontaneous
  Country: ES (occurrence: ES)
  Receive Date: 20150319
  Receipt Date: 20150326
  Transmission Date: 20150721
  Serious: Yes (Life-Threatening, Hospitalization)
  Sender: FDA-Public Use
  Company Number: PHHY2015ES032694

PATIENT
  Age: 87 Year
  Sex: Female

DRUGS (7)
  1. TEGRETOL [Suspect]
     Active Substance: CARBAMAZEPINE
     Indication: TRIGEMINAL NEURALGIA
     Dosage: 400 MG, THREE
     Route: 048
     Dates: start: 20140302, end: 20140402
  2. GABAPENTINA [Concomitant]
     Active Substance: GABAPENTIN
     Indication: TRIGEMINAL NEURALGIA
     Dosage: 600 MG, TWO
     Route: 048
     Dates: start: 201310
  3. CRESTOR [Concomitant]
     Active Substance: ROSUVASTATIN CALCIUM
     Indication: DYSLIPIDAEMIA
     Dosage: 5 MG, ONE
     Route: 048
     Dates: start: 2012
  4. METAMIZOL//METAMIZOLE MAGNESIUM [Concomitant]
     Indication: TRIGEMINAL NEURALGIA
     Dosage: 1725 OT, THREE
     Route: 048
     Dates: start: 201310
  5. INDAPAMIDE. [Suspect]
     Active Substance: INDAPAMIDE
     Indication: HYPERTENSION
     Dosage: UNK
     Route: 048
     Dates: start: 2012, end: 20140402
  6. LEXATIN [Concomitant]
     Active Substance: BROMAZEPAM
     Indication: ANXIETY
     Dosage: 4.5 MG, THREE
     Route: 048
     Dates: start: 20140302, end: 20140402
  7. OMEPRAZOLE. [Concomitant]
     Active Substance: OMEPRAZOLE
     Indication: PROPHYLAXIS
     Dosage: UNK
     Route: 065
     Dates: start: 2012

REACTIONS (4)
  - Craniocerebral injury [Recovering/Resolving]
  - Skull fracture [Recovering/Resolving]
  - Subarachnoid haemorrhage [Recovering/Resolving]
  - Hyponatraemia [Recovered/Resolved]

NARRATIVE: CASE EVENT DATE: 20140402
